FAERS Safety Report 21285594 (Version 2)
Quarter: 2023Q2

REPORT INFORMATION
  Report Type: Spontaneous
  Country: ES (occurrence: ES)
  Receive Date: 20220902
  Receipt Date: 20230608
  Transmission Date: 20230722
  Serious: Yes (Hospitalization)
  Sender: FDA-Public Use
  Company Number: ES-SUN PHARMACEUTICAL INDUSTRIES LTD-2022RR-353354

PATIENT
  Age: 92 Year
  Sex: Male

DRUGS (4)
  1. AZITHROMYCIN [Suspect]
     Active Substance: AZITHROMYCIN
     Indication: Pneumonia
     Dosage: 500MG EVERY 24 HOURS
     Route: 048
     Dates: start: 20220801, end: 20220803
  2. CEFTRIAXONE [Suspect]
     Active Substance: CEFTRIAXONE
     Indication: Pneumonia
     Dosage: 1G EVERY 24 HOURS
     Route: 040
     Dates: start: 20220801, end: 20220803
  3. CEFDITOREN [Suspect]
     Active Substance: CEFDITOREN
     Indication: Pneumonia
     Dosage: 400MG EVERY 12 HOURS
     Route: 048
     Dates: start: 20220804, end: 20220808
  4. Amoxicilina/Acido clavulanico 500 mg/125 mg 12 comprimidos [Concomitant]
     Indication: Pneumonia
     Dosage: 500/125MG 1 TABLET EVERY 8 HOURS
     Route: 048
     Dates: start: 20220728, end: 20220801

REACTIONS (1)
  - Clostridium difficile colitis [Recovering/Resolving]

NARRATIVE: CASE EVENT DATE: 20220808
